FAERS Safety Report 24065344 (Version 1)
Quarter: 2024Q3

REPORT INFORMATION
  Report Type: Report from Study
  Country: US (occurrence: None)
  Receive Date: 20240709
  Receipt Date: 20240709
  Transmission Date: 20241016
  Serious: Yes (Hospitalization)
  Sender: ASTRAZENECA
  Company Number: 2024A151809

PATIENT
  Sex: Female

DRUGS (1)
  1. BREZTRI [Suspect]
     Active Substance: BUDESONIDE\FORMOTEROL\GLYCOPYRROLATE
     Route: 055

REACTIONS (8)
  - Illness [Unknown]
  - Pneumonia [Unknown]
  - Sepsis [Unknown]
  - Hypotension [Unknown]
  - Product dose omission issue [Unknown]
  - Skin discolouration [Unknown]
  - Asthenia [Unknown]
  - Product use in unapproved indication [Unknown]
